FAERS Safety Report 10473261 (Version 3)
Quarter: 2014Q4

REPORT INFORMATION
  Report Type: Report from Study
  Country: US (occurrence: US)
  Receive Date: 20140924
  Receipt Date: 20141015
  Transmission Date: 20150528
  Serious: Yes (Hospitalization, Other)
  Sender: FDA-Public Use
  Company Number: US-ABBVIE-14K-163-1286399-00

PATIENT
  Age: 54 Year
  Sex: Male

DRUGS (3)
  1. HUMIRA [Suspect]
     Active Substance: ADALIMUMAB
     Indication: CROHN^S DISEASE
     Route: 065
     Dates: start: 20140714
  2. QUESTRAN [Concomitant]
     Active Substance: CHOLESTYRAMINE
     Indication: FAECAL VOLUME DECREASED
  3. DAIRY [Concomitant]
     Indication: PRODUCT USED FOR UNKNOWN INDICATION
     Dosage: TAPERED DOWN

REACTIONS (11)
  - Intestinal anastomosis complication [Not Recovered/Not Resolved]
  - Nausea [Recovered/Resolved]
  - Injection site erythema [Recovered/Resolved]
  - Colitis ulcerative [Unknown]
  - Malaise [Recovered/Resolved]
  - Crohn^s disease [Recovered/Resolved]
  - Injection site warmth [Recovered/Resolved]
  - Intestinal obstruction [Unknown]
  - Retching [Recovered/Resolved]
  - Rectal ulcer [Not Recovered/Not Resolved]
  - Gastrointestinal obstruction [Unknown]

NARRATIVE: CASE EVENT DATE: 2014
